FAERS Safety Report 24616514 (Version 1)
Quarter: 2024Q4

REPORT INFORMATION
  Report Type: Spontaneous
  Country: GB (occurrence: GB)
  Receive Date: 20241114
  Receipt Date: 20241114
  Transmission Date: 20250115
  Serious: Yes (Life-Threatening, Hospitalization, Other)
  Sender: TEVA
  Company Number: None

PATIENT
  Age: 73 Year
  Sex: Female
  Weight: 100 kg

DRUGS (11)
  1. IMATINIB [Suspect]
     Active Substance: IMATINIB
     Indication: Chronic myeloid leukaemia
     Route: 065
  2. FUROSEMIDE [Concomitant]
     Active Substance: FUROSEMIDE
  3. INDAPAMIDE [Concomitant]
     Active Substance: INDAPAMIDE
  4. DOXAZOSIN [Concomitant]
     Active Substance: DOXAZOSIN\DOXAZOSIN MESYLATE
  5. ALBUTEROL [Concomitant]
     Active Substance: ALBUTEROL
  6. PERINDOPRIL [Concomitant]
     Active Substance: PERINDOPRIL
  7. LANSOPRAZOLE [Concomitant]
     Active Substance: LANSOPRAZOLE
  8. AMITRIPTYLINE [Concomitant]
     Active Substance: AMITRIPTYLINE
  9. SIMVASTATIN [Concomitant]
     Active Substance: SIMVASTATIN
  10. ACETAMINOPHEN [Concomitant]
     Active Substance: ACETAMINOPHEN
  11. BECLOMETHASONE [Concomitant]
     Active Substance: BECLOMETHASONE

REACTIONS (2)
  - Pneumonitis [Not Recovered/Not Resolved]
  - Rash [Recovered/Resolved]
